FAERS Safety Report 21579498 (Version 1)
Quarter: 2022Q4

REPORT INFORMATION
  Report Type: Spontaneous
  Country: TW (occurrence: TW)
  Receive Date: 20221110
  Receipt Date: 20221110
  Transmission Date: 20230112
  Serious: Yes (Life-Threatening, Other)
  Sender: FDA-Public Use
  Company Number: TW-002147023-NVSC2022TW252460

PATIENT
  Age: 9 Year
  Sex: Male

DRUGS (13)
  1. CYCLOSPORINE [Suspect]
     Active Substance: CYCLOSPORINE
     Indication: Graft versus host disease
     Dosage: UNK
     Route: 065
     Dates: start: 20211228, end: 20220730
  2. CYCLOSPORINE [Suspect]
     Active Substance: CYCLOSPORINE
     Dosage: UNK
     Route: 065
     Dates: start: 20221031
  3. CYCLOSPORINE [Suspect]
     Active Substance: CYCLOSPORINE
     Dosage: 12.5 MG (IVA Q12HV)
     Route: 065
     Dates: start: 20221101
  4. PREDNISOLONE [Suspect]
     Active Substance: PREDNISOLONE
     Indication: Product used for unknown indication
     Dosage: UNK
     Route: 065
     Dates: start: 20211228, end: 20220425
  5. RITUXIMAB [Suspect]
     Active Substance: RITUXIMAB
     Indication: Epstein-Barr virus infection
     Dosage: UNK
     Route: 065
     Dates: start: 20220803
  6. RITUXIMAB [Suspect]
     Active Substance: RITUXIMAB
     Dosage: UNK
     Route: 065
     Dates: start: 20220825
  7. RITUXIMAB [Suspect]
     Active Substance: RITUXIMAB
     Dosage: UNK
     Route: 065
     Dates: start: 20221005
  8. RITUXIMAB [Suspect]
     Active Substance: RITUXIMAB
     Dosage: UNK
     Route: 065
     Dates: start: 20221012
  9. CORTISONE [Suspect]
     Active Substance: CORTISONE
     Indication: Adrenal insufficiency
     Dosage: 25 MG, BID
     Route: 065
     Dates: start: 20220425, end: 20221012
  10. CORTISONE [Suspect]
     Active Substance: CORTISONE
     Dosage: UNK (25MG QD + 12.5MG QPM)
     Route: 065
     Dates: start: 20221013, end: 20221017
  11. CORTISONE [Suspect]
     Active Substance: CORTISONE
     Dosage: 12.5 MG, BID
     Route: 065
     Dates: start: 20221018, end: 20221031
  12. CORTISONE [Suspect]
     Active Substance: CORTISONE
     Dosage: UNK (25MG QD + 12.5MG QPM)
     Route: 065
     Dates: start: 20221101, end: 20221104
  13. METHYLPREDNISOLONE [Concomitant]
     Active Substance: METHYLPREDNISOLONE
     Indication: Product used for unknown indication
     Dosage: 7 MG (Q12HV)
     Route: 065
     Dates: start: 20221105

REACTIONS (14)
  - Graft versus host disease in skin [Unknown]
  - Septic shock [Unknown]
  - Staphylococcal bacteraemia [Unknown]
  - Pseudomonal bacteraemia [Unknown]
  - Pneumonia bacterial [Recovered/Resolved]
  - Aspergillus infection [Recovered/Resolved]
  - Oesophageal candidiasis [Recovered/Resolved]
  - Epstein-Barr virus infection reactivation [Not Recovered/Not Resolved]
  - Pulmonary oedema [Unknown]
  - Acute kidney injury [Unknown]
  - Adrenal insufficiency [Unknown]
  - Aspergillus infection [Not Recovered/Not Resolved]
  - Skin infection [Unknown]
  - Skin exfoliation [Unknown]

NARRATIVE: CASE EVENT DATE: 20220606
